FAERS Safety Report 20160605 (Version 1)
Quarter: 2021Q4

REPORT INFORMATION
  Report Type: Report from Study
  Country: FR (occurrence: FR)
  Receive Date: 20211208
  Receipt Date: 20211208
  Transmission Date: 20220303
  Serious: Yes (Hospitalization)
  Sender: FDA-Public Use
  Company Number: FR-ONCOPEPPR-00901

PATIENT
  Age: 75 Year
  Sex: Female

DRUGS (8)
  1. MELPHALAN FLUFENAMIDE HYDROCHLORIDE [Suspect]
     Active Substance: MELPHALAN FLUFENAMIDE HYDROCHLORIDE
     Indication: Plasma cell myeloma
     Dosage: TIME INTERVAL: CYCLICAL
     Route: 065
     Dates: start: 20210806
  2. MELPHALAN FLUFENAMIDE HYDROCHLORIDE [Suspect]
     Active Substance: MELPHALAN FLUFENAMIDE HYDROCHLORIDE
     Indication: Plasma cell myeloma
     Dosage: TIME INTERVAL: CYCLICAL
     Route: 065
  3. DEXAMETHASONE [Suspect]
     Active Substance: DEXAMETHASONE
     Indication: Plasma cell myeloma
     Dosage: TIME INTERVAL: CYCLICAL
     Route: 065
  4. 1881996 (GLOBALC3Sep21): lansoprazole [Concomitant]
     Route: 048
  5. 1789739 (GLOBALC3Sep21): valaciclovir [Concomitant]
     Indication: Prophylaxis
     Route: 048
  6. 3053502 (GLOBALC3Sep21): ramipril [Concomitant]
     Indication: Hypertension
     Route: 048
  7. 1224914 (GLOBALC3Sep21): paracetamol [Concomitant]
     Indication: Pain
     Dosage: TIME INTERVAL: 0.33333333 DAYS
     Route: 048
  8. 1333030 (GLOBALC3Sep21): Bisoprolol [Concomitant]
     Indication: Hypertension
     Route: 048

REACTIONS (2)
  - Klebsiella sepsis [Recovered/Resolved]
  - Enterococcal sepsis [Recovered/Resolved]

NARRATIVE: CASE EVENT DATE: 20210811
